FAERS Safety Report 10578740 (Version 1)
Quarter: 2014Q4

REPORT INFORMATION
  Report Type: Spontaneous
  Country: US (occurrence: US)
  Receive Date: 20141112
  Receipt Date: 20141112
  Transmission Date: 20150529
  Serious: No
  Sender: FDA-Public Use
  Company Number: US-BAYER-2014-167171

PATIENT
  Age: 70 Year
  Sex: Female
  Weight: 54 kg

DRUGS (6)
  1. GABAPENTIN. [Concomitant]
     Active Substance: GABAPENTIN
  2. VITAMIN D [Concomitant]
     Active Substance: CHOLECALCIFEROL
  3. SIMVASTATIN. [Concomitant]
     Active Substance: SIMVASTATIN
  4. VITAMIN B12 NOS [Concomitant]
  5. ALEVE [Suspect]
     Active Substance: NAPROXEN SODIUM
     Indication: BACK PAIN
     Dosage: 1 DF, TID
     Route: 048
     Dates: start: 201410
  6. CENTRUM [MINERALS NOS,VITAMINS NOS] [Concomitant]

REACTIONS (1)
  - Incorrect drug administration duration [Unknown]

NARRATIVE: CASE EVENT DATE: 201410
